FAERS Safety Report 7681211-9 (Version None)
Quarter: 2011Q3

REPORT INFORMATION
  Report Type: 
  Country: None (occurrence: None)
  Receive Date: 20110812
  Receipt Date: 20110810
  Transmission Date: 20111222
  Serious: Yes (Death, Hospitalization, Other)
  Sender: FDA-Public Use
  Company Number: US-ELI_LILLY_AND_COMPANY-US200911000419

PATIENT
  Age: 55 Year
  Sex: Female
  Weight: 86.168 kg

DRUGS (4)
  1. METFORMIN HCL [Concomitant]
     Indication: DIABETES MELLITUS
  2. GLIPIZIDE [Concomitant]
     Indication: DIABETES MELLITUS
  3. BYETTA [Suspect]
     Dosage: 10 UG, 2/D
     Route: 065
     Dates: start: 20070101, end: 20071029
  4. BYETTA [Suspect]
     Dosage: 5 UG, 2/D
     Route: 065
     Dates: start: 20070309

REACTIONS (3)
  - CARDIAC FAILURE [None]
  - PANCREATITIS ACUTE [None]
  - MULTI-ORGAN FAILURE [None]
